FAERS Safety Report 9272995 (Version 1)
Quarter: 2013Q2

REPORT INFORMATION
  Report Type: Report from Study
  Country: US (occurrence: US)
  Receive Date: 20130506
  Receipt Date: 20130506
  Transmission Date: 20140414
  Serious: Yes (Hospitalization)
  Sender: FDA-Public Use
  Company Number: PHEH2013US009801

PATIENT
  Age: 79 Year
  Sex: Female
  Weight: 88.44 kg

DRUGS (13)
  1. AFINITOR [Suspect]
     Indication: BREAST CANCER
     Dosage: 5 MG, QD
     Route: 048
  2. ASPIRIN [Concomitant]
     Dosage: 81 MG, UNK
  3. COREG [Concomitant]
     Dosage: 3.125 MG, UNK
  4. MAGNESIUM OXIDE [Concomitant]
     Dosage: 400 MG, UNK
  5. SYNTHROID [Concomitant]
     Dosage: 50 UG, UNK
  6. CELEXA [Concomitant]
     Dosage: 10 MG, UNK
  7. EXEMESTAN [Concomitant]
     Dosage: 25 MG, UNK
  8. HUMALOG [Concomitant]
     Dosage: 100/ML
  9. LANTUS [Concomitant]
     Dosage: 100 /ML, UNK
  10. VITAMIN B6 [Concomitant]
     Dosage: 250 MG, UNK
  11. ZOCOR [Concomitant]
     Dosage: 10 MG, UNK
  12. VITAMIN D//ERGOCALCIFEROL [Concomitant]
     Dosage: 1000 U, UNK
  13. CITRACAL + D [Concomitant]

REACTIONS (3)
  - Blood glucose decreased [Recovered/Resolved]
  - Local swelling [Recovering/Resolving]
  - Pruritus [Unknown]
